FAERS Safety Report 6428333-8 (Version None)
Quarter: 2009Q4

REPORT INFORMATION
  Report Type: 
  Country: None (occurrence: None)
  Receive Date: 20091105
  Receipt Date: 20091029
  Transmission Date: 20100525
  Serious: Yes (Hospitalization, Other)
  Sender: FDA-Public Use
  Company Number: CH-AMGEN-UK365695

PATIENT
  Sex: Male
  Weight: 90 kg

DRUGS (9)
  1. NEULASTA [Suspect]
     Indication: CHEMOTHERAPY
     Route: 058
     Dates: start: 20090617, end: 20090818
  2. NEUPOGEN [Suspect]
     Indication: CHEMOTHERAPY
     Route: 065
     Dates: end: 20090723
  3. ADRIBLASTIN [Suspect]
     Route: 042
     Dates: start: 20090615
  4. ONCOVIN [Suspect]
     Route: 042
     Dates: start: 20090615
  5. ENDOXAN [Suspect]
     Route: 042
     Dates: start: 20090615
  6. MABTHERA [Concomitant]
     Route: 042
     Dates: start: 20090615
  7. PREDNISONE TAB [Concomitant]
     Route: 048
     Dates: start: 20090615
  8. ZESTORETIC [Concomitant]
     Route: 048
  9. NEBILET [Concomitant]
     Route: 048

REACTIONS (3)
  - FEBRILE NEUTROPENIA [None]
  - NEUTROPENIA [None]
  - ORAL HERPES [None]
